FAERS Safety Report 16925461 (Version 1)
Quarter: 2019Q4

REPORT INFORMATION
  Report Type: Spontaneous
  Country: GB (occurrence: GB)
  Receive Date: 20191016
  Receipt Date: 20191016
  Transmission Date: 20200122
  Serious: Yes (Disabling)
  Sender: FDA-Public Use
  Company Number: GB-MYLANLABS-2019M1097112

PATIENT
  Age: 65 Year
  Sex: Female
  Weight: 101.6 kg

DRUGS (3)
  1. PARACETAMOL [Concomitant]
     Active Substance: ACETAMINOPHEN
     Dosage: 4 GRAM
  2. INDAPAMIDE. [Concomitant]
     Active Substance: INDAPAMIDE
     Dosage: 1 DOSAGE FORM, QD
  3. IBUPROFEN. [Suspect]
     Active Substance: IBUPROFEN
     Indication: CARTILAGE INJURY
     Dosage: 1500 MILLIGRAM, QD
     Route: 048
     Dates: start: 201807, end: 20190512

REACTIONS (1)
  - Blindness unilateral [Not Recovered/Not Resolved]

NARRATIVE: CASE EVENT DATE: 20190314
